FAERS Safety Report 6370692-9 (Version None)
Quarter: 2009Q3

REPORT INFORMATION
  Report Type: 
  Country: None (occurrence: None)
  Receive Date: 20090923
  Receipt Date: 20090715
  Transmission Date: 20100115
  Serious: Yes (Other)
  Sender: FDA-Public Use
  Company Number: US-ASTRAZENECA-2006UW27359

PATIENT
  Age: 38 Year
  Sex: Female

DRUGS (23)
  1. SEROQUEL [Suspect]
     Indication: PSYCHOTIC DISORDER
     Route: 048
     Dates: start: 20011220, end: 20060623
  2. SEROQUEL [Suspect]
     Indication: SLEEP DISORDER
     Route: 048
     Dates: start: 20011220, end: 20060623
  3. SEROQUEL [Suspect]
     Route: 048
     Dates: start: 20060414
  4. SEROQUEL [Suspect]
     Route: 048
     Dates: start: 20060414
  5. RISPERDAL [Concomitant]
     Dates: start: 20000501, end: 20061012
  6. ZYPREXA [Concomitant]
     Dates: start: 20000812, end: 20001019
  7. ZYPREXA [Concomitant]
     Dates: start: 20000812, end: 20001019
  8. TRAZODONE [Concomitant]
     Route: 048
  9. DEPAKOTE [Concomitant]
     Route: 048
  10. PROVENTIL-HFA [Concomitant]
     Route: 048
  11. CLARITIN [Concomitant]
     Route: 048
  12. NAPROXEN [Concomitant]
     Route: 048
  13. CYCLOBENZAPRINE [Concomitant]
     Route: 048
  14. GABAPENTIN [Concomitant]
     Dosage: 300 MG- 1 IN MORNING AND 2 AT BEDTIME
     Route: 048
  15. HALOPERIDOL [Concomitant]
     Route: 065
  16. LORAZEPAM [Concomitant]
     Route: 048
  17. WELLBUTRIN [Concomitant]
     Route: 048
  18. LISINOPRIL [Concomitant]
     Route: 048
  19. GLIPIZIDE [Concomitant]
     Route: 048
  20. TEMAZEPAM [Concomitant]
     Route: 048
  21. AMBIEN [Concomitant]
     Route: 048
  22. LIPITOR [Concomitant]
     Route: 048
  23. CYMBALTA [Concomitant]
     Route: 048

REACTIONS (3)
  - KETOACIDOSIS [None]
  - PANCREATITIS [None]
  - TYPE 2 DIABETES MELLITUS [None]
